FAERS Safety Report 7910216-5 (Version None)
Quarter: 2011Q4

REPORT INFORMATION
  Report Type: 
  Country: None (occurrence: None)
  Receive Date: 20111111
  Receipt Date: 20111102
  Transmission Date: 20120403
  Serious: Yes (Other)
  Sender: FDA-Public Use
  Company Number: PHHY2011DK097497

PATIENT
  Sex: Female

DRUGS (1)
  1. GESTODENE AND ETHINYL ESTRADIOL [Suspect]
     Dosage: 1 DF, QD
     Route: 048

REACTIONS (1)
  - HAEMORRHAGE [None]
